FAERS Safety Report 9332823 (Version 2)
Quarter: 2013Q3

REPORT INFORMATION
  Report Type: Spontaneous
  Country: DE (occurrence: DE)
  Receive Date: 20130606
  Receipt Date: 20130829
  Transmission Date: 20140515
  Serious: Yes (Hospitalization, Disabling, Other)
  Sender: FDA-Public Use
  Company Number: DE-PFIZER INC-2013169240

PATIENT
  Age: 72 Year
  Sex: Male
  Weight: 60 kg

DRUGS (6)
  1. LYRICA [Suspect]
     Indication: DEPRESSION
     Dosage: 75 MG, 2X/DAY
     Route: 048
     Dates: start: 20130228, end: 20130307
  2. LYRICA [Suspect]
     Indication: ANXIETY
  3. ZYPREXA [Suspect]
     Indication: DEPRESSION
     Dosage: 5 MG, 1X/DAY
     Route: 048
     Dates: start: 20130302, end: 20130307
  4. TAMSULOSIN HYDROCHLORIDE [Concomitant]
     Indication: BENIGN PROSTATIC HYPERPLASIA
     Dosage: 0.4 MG, 1X/DAY
     Route: 048
     Dates: start: 201108
  5. FOLSAN [Concomitant]
     Indication: FOLATE DEFICIENCY
     Dosage: 5 MG, 1X/DAY
     Route: 048
     Dates: start: 20130125
  6. ASS [Concomitant]
     Indication: CORONARY ARTERY DISEASE
     Dosage: 100 MG, 1X/DAY
     Route: 048
     Dates: start: 201007

REACTIONS (2)
  - Off label use [Unknown]
  - Retinal detachment [Not Recovered/Not Resolved]
